FAERS Safety Report 7936779-1 (Version None)
Quarter: 2011Q4

REPORT INFORMATION
  Report Type: 
  Country: None (occurrence: None)
  Receive Date: 20111123
  Receipt Date: 20111114
  Transmission Date: 20120403
  Serious: Yes (Hospitalization)
  Sender: FDA-Public Use
  Company Number: US-BAYER-2011-032883

PATIENT
  Age: 20 Year
  Sex: Female

DRUGS (4)
  1. YAZ [Suspect]
     Indication: ORAL CONTRACEPTION
     Dosage: UNK
     Dates: start: 20070201, end: 20090901
  2. CLOBETASOL [Concomitant]
     Indication: SKIN INJURY
     Dosage: UNK
     Dates: start: 20020101, end: 20060101
  3. IBUPROFEN [Concomitant]
     Dosage: UNK
     Dates: start: 20050101, end: 20110101
  4. HYDROXYZINE [Concomitant]
     Dosage: UNK
     Dates: start: 20030101

REACTIONS (3)
  - PAIN [None]
  - GALLBLADDER DISORDER [None]
  - CHOLECYSTITIS CHRONIC [None]
